FAERS Safety Report 21769799 (Version 2)
Quarter: 2023Q1

REPORT INFORMATION
  Report Type: Spontaneous
  Country: US (occurrence: US)
  Receive Date: 20221223
  Receipt Date: 20230223
  Transmission Date: 20230417
  Serious: Yes (Disabling, Other)
  Sender: FDA-Public Use
  Company Number: US-CELLTRION INC.-2022US021363

PATIENT

DRUGS (2)
  1. INFLECTRA [Suspect]
     Active Substance: INFLIXIMAB-DYYB
     Indication: Colitis ulcerative
     Dosage: 300MG, CYCLIC (300 MG, INTRAVENOUS INFUSION, 2 WEEKS APART)
     Route: 042
     Dates: start: 20220726
  2. INFLECTRA [Suspect]
     Active Substance: INFLIXIMAB-DYYB
     Dosage: 300MG, CYCLIC (300MG INTRAVENOUS INFUSION, 2 WEEKS APART)
     Route: 042
     Dates: start: 20220809

REACTIONS (5)
  - Eating disorder [Not Recovered/Not Resolved]
  - Abdominal discomfort [Unknown]
  - Abdominal pain [Not Recovered/Not Resolved]
  - Malaise [Unknown]
  - Underdose [Unknown]
